FAERS Safety Report 6975038-0 (Version None)
Quarter: 2010Q3

REPORT INFORMATION
  Report Type: 
  Country: None (occurrence: None)
  Receive Date: 20100910
  Receipt Date: 20090129
  Transmission Date: 20110219
  Serious: No
  Sender: FDA-Public Use
  Company Number: US-WYE-H07996909

PATIENT
  Sex: Female

DRUGS (5)
  1. PRISTIQ [Suspect]
     Indication: DEPRESSION
     Route: 048
     Dates: start: 20081202, end: 20081216
  2. PRISTIQ [Suspect]
     Route: 048
     Dates: start: 20081217, end: 20090104
  3. PRISTIQ [Suspect]
     Route: 048
     Dates: start: 20090105, end: 20090111
  4. PRISTIQ [Suspect]
     Route: 048
     Dates: start: 20090112, end: 20090118
  5. ADDERALL 10 [Concomitant]

REACTIONS (7)
  - ANGER [None]
  - DECREASED APPETITE [None]
  - DRUG INEFFECTIVE [None]
  - DRUG WITHDRAWAL SYNDROME [None]
  - IRRITABILITY [None]
  - MUSCLE SPASMS [None]
  - NAUSEA [None]
